FAERS Safety Report 6176707-5 (Version None)
Quarter: 2009Q2

REPORT INFORMATION
  Report Type: 
  Country: None (occurrence: None)
  Receive Date: 20090501
  Receipt Date: 20090428
  Transmission Date: 20091009
  Serious: No
  Sender: FDA-Public Use
  Company Number: JP-B.I. PHARMACEUTICALS,INC./RIDGEFIELD-2009-BP-04730NB

PATIENT
  Sex: Female

DRUGS (4)
  1. MICARDIS [Suspect]
     Indication: HYPERTENSION
     Dosage: 40MG
     Route: 048
     Dates: start: 20070314
  2. ALPRAZOLAM [Concomitant]
     Indication: GASTRITIS
     Dosage: 2ANZ
     Route: 048
     Dates: start: 19970712
  3. ALPRAZOLAM [Concomitant]
     Indication: HYPOCHONDRIASIS
  4. SUCRALFATE [Concomitant]
     Indication: GASTRITIS
     Dosage: 3G
     Route: 048
     Dates: start: 19970812

REACTIONS (1)
  - HYPERLIPIDAEMIA [None]
